FAERS Safety Report 13110231 (Version 1)
Quarter: 2017Q1

REPORT INFORMATION
  Report Type: Spontaneous
  Country: US (occurrence: US)
  Receive Date: 20170112
  Receipt Date: 20170112
  Transmission Date: 20170428
  Serious: Yes (Hospitalization)
  Sender: FDA-Public Use
  Company Number: US-ROCHE-GNE321557

PATIENT
  Age: 64 Year
  Sex: Female

DRUGS (1)
  1. ACTIVASE [Suspect]
     Active Substance: ALTEPLASE
     Indication: ISCHAEMIC STROKE
     Dosage: UNK
     Route: 042
     Dates: start: 20110618

REACTIONS (2)
  - Gastrointestinal haemorrhage [Unknown]
  - International normalised ratio increased [None]
